FAERS Safety Report 5138643-2 (Version None)
Quarter: 2006Q4

REPORT INFORMATION
  Report Type: 
  Country: None (occurrence: None)
  Receive Date: 20061030
  Receipt Date: 20061025
  Transmission Date: 20070319
  Serious: Yes (Hospitalization)
  Sender: FDA-Public Use
  Company Number: RU-GLAXOSMITHKLINE-B0444267A

PATIENT
  Age: 43 Year
  Sex: Male
  Weight: 83 kg

DRUGS (2)
  1. AUGMENTIN '125' [Suspect]
     Indication: CHRONIC SINUSITIS
     Route: 048
     Dates: start: 20060401, end: 20060401
  2. NO CONCURRENT MEDICATIONS [Concomitant]

REACTIONS (5)
  - ASTHENIA [None]
  - PRURITUS [None]
  - PYREXIA [None]
  - RASH [None]
  - RASH GENERALISED [None]
